FAERS Safety Report 10334735 (Version 3)
Quarter: 2014Q3

REPORT INFORMATION
  Report Type: Spontaneous
  Country: US (occurrence: US)
  Receive Date: 20140723
  Receipt Date: 20140902
  Transmission Date: 20150326
  Serious: Yes (Hospitalization, Other)
  Sender: FDA-Public Use
  Company Number: US-PFIZER INC-2014204538

PATIENT
  Age: 47 Year
  Sex: Male
  Weight: 93.9 kg

DRUGS (23)
  1. ESCAVITE [Concomitant]
     Active Substance: .ALPHA.-TOCOPHEROL ACETATE\ASCORBIC ACID\BIOTIN\CALCIUM PANTOTHENATE\CHOLECALCIFEROL\COPPER\CYANOCOBALAMIN\FOLIC ACID\IRON\MAGNESIUM\NIACINAMIDE\PYRIDOXINE HYDROCHLORIDE\RIBOFLAVIN\SODIUM FLUORIDE\THIAMINE MONONITRATE\VITAMIN A ACETATE\ZINC
     Dosage: 1 UNK,  1X/DAY
     Route: 048
  2. NAPROXEN. [Concomitant]
     Active Substance: NAPROXEN
     Dosage: 500 MG, 2X/DAY
     Route: 048
  3. NORCO [Concomitant]
     Active Substance: ACETAMINOPHEN\HYDROCODONE BITARTRATE
     Dosage: UNK, 4X/DAY (325 MG-5 MG 1 TAB(S) EVERY 6 HOURS)
     Route: 048
  4. ADVAIR DISKUS [Concomitant]
     Active Substance: FLUTICASONE PROPIONATE\SALMETEROL XINAFOATE
     Dosage: UNK 2X/DAY (500 MCG-50 MCG 1 PUFF(S) INHALED 2 TIMES A DAY)
  5. LEVSIN [Concomitant]
     Active Substance: HYOSCYAMINE SULFATE
     Dosage: 0.125 MG, 4X/DAY (5 DAYS)
     Route: 048
  6. DEPO-TESTOSTERONE [Suspect]
     Active Substance: TESTOSTERONE CYPIONATE
     Indication: BLOOD TESTOSTERONE DECREASED
     Dosage: 20-30 MG ONCE A WEEK
     Dates: start: 20120927, end: 20140408
  7. DEPO-TESTOSTERONE [Suspect]
     Active Substance: TESTOSTERONE CYPIONATE
     Dosage: 200 MG, MONTHLY
     Route: 030
     Dates: start: 20131112
  8. TRAZODONE [Concomitant]
     Active Substance: TRAZODONE HYDROCHLORIDE
     Indication: SLEEP DISORDER
     Dosage: 50 MG, 1X/DAY (1-2 TAB EVERY NIGHT)
     Route: 048
  9. AMOXICILLIN. [Concomitant]
     Active Substance: AMOXICILLIN
     Dosage: 875 MG, 2X/DAY
     Route: 048
     Dates: end: 20131117
  10. ALBUTEROL-IPRATROPIUM [Concomitant]
     Dosage: 3 ML, 4X/DAY (2.5 MG-0.5 MG/3ML)
  11. TIZANIDINE HYDROCHLORIDE. [Concomitant]
     Active Substance: TIZANIDINE HYDROCHLORIDE
     Dosage: 4 MG, 2X/DAY  (EVERY 12 HOURS)
     Route: 048
  12. OMEPRAZOLE. [Concomitant]
     Active Substance: OMEPRAZOLE
     Dosage: 40 MG, 1X/DAY (WITH DINNER)
     Route: 048
  13. BROMFED DM [Concomitant]
     Active Substance: BROMPHENIRAMINE MALEATE\DEXTROMETHORPHAN HYDROBROMIDE\PSEUDOEPHEDRINE HYDROCHLORIDE
     Indication: NASAL CONGESTION
  14. ORPHENADRINE CITRATE. [Concomitant]
     Active Substance: ORPHENADRINE CITRATE
     Dosage: 100 MG, 2X/DAY
     Route: 048
  15. VICODIN [Concomitant]
     Active Substance: ACETAMINOPHEN\HYDROCODONE BITARTRATE
     Indication: PAIN
     Dosage: 1 DF, 3X/DAY (500 MG-5 MG ) AS NEEDED
     Route: 048
  16. ADVAIR HFA [Concomitant]
     Active Substance: FLUTICASONE PROPIONATE\SALMETEROL XINAFOATE
     Indication: ASTHMA
     Dosage: 1 DF, 2X/DAY (500 MCG-50 MCG)
  17. FLUTICASONE [Concomitant]
     Active Substance: FLUTICASONE\FLUTICASONE PROPIONATE
     Indication: ASTHMA
     Dosage: UNK
  18. AMITRIPTYLINE [Concomitant]
     Active Substance: AMITRIPTYLINE
     Dosage: 200 MG, 1X/DAY (AT BEDTIME)
     Route: 048
  19. DIAZEPAM. [Concomitant]
     Active Substance: DIAZEPAM
     Dosage: 10 MG, 3X/DAY
     Route: 048
  20. HYDROCODONE [Concomitant]
     Active Substance: HYDROCODONE
     Indication: PAIN
     Dosage: UNK
  21. SIMVASTATIN. [Concomitant]
     Active Substance: SIMVASTATIN
     Dosage: 10 MG, 1X/DAY (AT BEDTIME)
     Route: 048
  22. BROMFED DM [Concomitant]
     Active Substance: BROMPHENIRAMINE MALEATE\DEXTROMETHORPHAN HYDROBROMIDE\PSEUDOEPHEDRINE HYDROCHLORIDE
     Indication: COUGH
     Dosage: 10 ML, 4X/DAY (2 MG-10 MG-30 MG/5 ML) AS NEEDED
     Route: 048
  23. MONTELUKAST SODIUM. [Concomitant]
     Active Substance: MONTELUKAST SODIUM
     Dosage: 10 MG, 1X/DAY (IN THE EVENING)
     Route: 048

REACTIONS (10)
  - Cerebrovascular accident [Unknown]
  - Vomiting [Unknown]
  - Hyperhidrosis [Unknown]
  - Nausea [Unknown]
  - Asthma [Unknown]
  - Blood testosterone abnormal [Unknown]
  - Convulsion [Unknown]
  - Heart rate increased [Unknown]
  - Burning sensation [Unknown]
  - Headache [Not Recovered/Not Resolved]

NARRATIVE: CASE EVENT DATE: 2012
